FAERS Safety Report 6417338-9 (Version None)
Quarter: 2009Q4

REPORT INFORMATION
  Report Type: 
  Country: None (occurrence: None)
  Receive Date: 20091028
  Receipt Date: 20091016
  Transmission Date: 20100525
  Serious: Yes (Death)
  Sender: FDA-Public Use
  Company Number: US-PFIZER INC-2009284366

PATIENT
  Sex: Male

DRUGS (2)
  1. DOXYCYCLINE HYCLATE [Suspect]
  2. OXYCODONE [Suspect]

REACTIONS (1)
  - DEATH [None]
